FAERS Safety Report 5164364-6 (Version None)
Quarter: 2006Q4

REPORT INFORMATION
  Report Type: 
  Country: None (occurrence: None)
  Receive Date: 20061129
  Receipt Date: 20061129
  Transmission Date: 20070319
  Serious: Yes (Death)
  Sender: FDA-Public Use
  Company Number: None

PATIENT
  Age: 21 Year
  Sex: Female
  Weight: 55 kg

DRUGS (4)
  1. STAVUDINE [Suspect]
     Indication: HIV INFECTION
     Dosage: 30 MG   BID   PO
     Route: 048
     Dates: start: 20060710
  2. LAMIVUDINE [Suspect]
     Indication: HIV INFECTION
     Dosage: 150 MG  BID  PO
     Route: 048
     Dates: start: 20060710
  3. EFAVIRENZ [Suspect]
     Dosage: 600 MG  Q HS  PO
     Route: 048
  4. BACTRIM [Concomitant]

REACTIONS (7)
  - DEHYDRATION [None]
  - DIARRHOEA [None]
  - GASTROENTERITIS CRYPTOSPORIDIAL [None]
  - IMMUNOSUPPRESSION [None]
  - ISOSPORIASIS [None]
  - VOMITING [None]
  - WEIGHT DECREASED [None]
